FAERS Safety Report 5885688-0 (Version None)
Quarter: 2008Q3

REPORT INFORMATION
  Report Type: 
  Country: None (occurrence: None)
  Receive Date: 20080912
  Receipt Date: 20080905
  Transmission Date: 20090109
  Serious: Yes (Other)
  Sender: FDA-Public Use
  Company Number: JHP200800256

PATIENT
  Age: 48 Year
  Sex: Female

DRUGS (4)
  1. DELESTROGEN [Suspect]
     Indication: LETHARGY
     Dosage: 1ML, QMON; INTRAMUSCULAR
     Route: 030
     Dates: start: 20041201, end: 20070301
  2. CLIMACTERON /0080401(ESTRADIOL BENZOATE, ESTRADIOL DIENANTATE, TESTOST [Suspect]
     Indication: LETHARGY
     Dosage: 1ML,QMON; INTRAMUSCULAR
     Route: 030
     Dates: start: 20041201, end: 20070301
  3. PREMARIN [Concomitant]
  4. ESTRACE [Concomitant]

REACTIONS (4)
  - ABSCESS ORAL [None]
  - DYSGEUSIA [None]
  - TONGUE DISCOLOURATION [None]
  - TOOTH EXTRACTION [None]
